FAERS Safety Report 25079095 (Version 2)
Quarter: 2025Q3

REPORT INFORMATION
  Report Type: Spontaneous
  Country: GB (occurrence: GB)
  Receive Date: 20250314
  Receipt Date: 20250806
  Transmission Date: 20251021
  Serious: Yes (Other)
  Sender: JOHNSON AND JOHNSON
  Company Number: GB-VIIV HEALTHCARE-GB2025EME027059

PATIENT
  Age: 46 Year
  Sex: Male
  Weight: 95 kg

DRUGS (2)
  1. RILPIVIRINE [Suspect]
     Active Substance: RILPIVIRINE
     Indication: Antiretroviral therapy
     Dosage: UNK
     Route: 065
     Dates: start: 20240301
  2. VOCABRIA [Suspect]
     Active Substance: CABOTEGRAVIR SODIUM
     Indication: Antiretroviral therapy
     Route: 065
     Dates: start: 20240301

REACTIONS (6)
  - Myelosuppression [Recovered/Resolved]
  - Neutropenia [Recovering/Resolving]
  - Fear of injection [Recovering/Resolving]
  - Arthralgia [Recovered/Resolved]
  - Benign ethnic neutropenia [Unknown]
  - Condition aggravated [Unknown]
